FAERS Safety Report 8409777-1 (Version None)
Quarter: 2012Q2

REPORT INFORMATION
  Report Type: 
  Country: None (occurrence: None)
  Receive Date: 20120605
  Receipt Date: 20120529
  Transmission Date: 20120825
  Serious: Yes (Hospitalization)
  Sender: FDA-Public Use
  Company Number: US-BAYER-2011-027791

PATIENT
  Age: 20 Year
  Sex: Female
  Weight: 65.76 kg

DRUGS (3)
  1. YAZ [Suspect]
     Indication: PREMENSTRUAL SYNDROME
     Dosage: UNK
     Dates: start: 20081001, end: 20090501
  2. LANTUS [Concomitant]
  3. HUMALOG [Concomitant]

REACTIONS (6)
  - PAIN [None]
  - GENERAL PHYSICAL HEALTH DETERIORATION [None]
  - ANXIETY [None]
  - SUPERIOR SAGITTAL SINUS THROMBOSIS [None]
  - INJURY [None]
  - EMOTIONAL DISTRESS [None]
